FAERS Safety Report 16207599 (Version 7)
Quarter: 2020Q2

REPORT INFORMATION
  Report Type: Spontaneous
  Country: US (occurrence: US)
  Receive Date: 20190417
  Receipt Date: 20200422
  Transmission Date: 20200713
  Serious: No
  Sender: FDA-Public Use
  Company Number: US-PFIZER INC-2019160246

PATIENT
  Age: 58 Year
  Sex: Female

DRUGS (4)
  1. XGEVA [Suspect]
     Active Substance: DENOSUMAB
     Indication: BREAST CANCER METASTATIC
     Dosage: UNK
     Dates: start: 20180801
  2. IBRANCE [Suspect]
     Active Substance: PALBOCICLIB
     Indication: BREAST CANCER METASTATIC
     Dosage: UNK
     Dates: start: 20180801
  3. LETROZOLE. [Suspect]
     Active Substance: LETROZOLE
     Indication: BREAST CANCER METASTATIC
     Dosage: UNK
     Dates: start: 201807
  4. FASLODEX [Concomitant]
     Active Substance: FULVESTRANT
     Dosage: UNK

REACTIONS (20)
  - Neoplasm progression [Unknown]
  - Arthralgia [Unknown]
  - Cognitive disorder [Unknown]
  - Anxiety [Unknown]
  - Pain in extremity [Unknown]
  - Dyspnoea [Unknown]
  - Mean cell volume increased [Unknown]
  - Diarrhoea [Unknown]
  - Middle insomnia [Unknown]
  - Insomnia [Unknown]
  - Nervousness [Unknown]
  - Emotional disorder [Unknown]
  - Abdominal discomfort [Unknown]
  - Fatigue [Unknown]
  - Influenza [Unknown]
  - Alopecia [Unknown]
  - Blood count abnormal [Unknown]
  - Paranoia [Unknown]
  - Weight decreased [Recovering/Resolving]
  - Nausea [Unknown]
